FAERS Safety Report 10227738 (Version 1)
Quarter: 2014Q2

REPORT INFORMATION
  Report Type: Spontaneous
  Country: US (occurrence: None)
  Receive Date: 20140609
  Receipt Date: 20140609
  Transmission Date: 20141212
  Serious: Yes (Hospitalization)
  Sender: FDA-Public Use
  Company Number: None

PATIENT
  Age: 64 Year
  Sex: Male
  Weight: 104.9 kg

DRUGS (1)
  1. LOSARTAN [Suspect]
     Indication: HYPERTENSION
     Route: 048
     Dates: start: 20120416, end: 20140310

REACTIONS (7)
  - Drug hypersensitivity [None]
  - Swelling face [None]
  - Pruritus [None]
  - Discomfort [None]
  - Eye swelling [None]
  - Rash [None]
  - Urticaria [None]
